FAERS Safety Report 6114263-8 (Version None)
Quarter: 2009Q1

REPORT INFORMATION
  Report Type: 
  Country: None (occurrence: None)
  Receive Date: 20090312
  Receipt Date: 20081014
  Transmission Date: 20090719
  Serious: No
  Sender: FDA-Public Use
  Company Number: US-ABBOTT-08P-163-0481665-00

PATIENT
  Sex: Female
  Weight: 56.296 kg

DRUGS (4)
  1. DEPAKOTE [Suspect]
     Indication: HEADACHE
     Route: 048
     Dates: start: 20080501, end: 20080905
  2. DEPAKOTE [Suspect]
     Indication: FACIAL PAIN
     Route: 048
     Dates: start: 20080906, end: 20080920
  3. DEPAKOTE [Suspect]
     Indication: NECK PAIN
  4. LEVOTHYROXINE SODIUM [Concomitant]
     Indication: THYROIDECTOMY
     Route: 048

REACTIONS (1)
  - ALOPECIA [None]
